FAERS Safety Report 15744288 (Version 1)
Quarter: 2018Q4

REPORT INFORMATION
  Report Type: Other
  Country: DE (occurrence: DE)
  Receive Date: 20181220
  Receipt Date: 20181220
  Transmission Date: 20190205
  Serious: Yes (Other)
  Sender: FDA-Public Use
  Company Number: DE-MACLEODS PHARMACEUTICALS US LTD-MAC2018019297

PATIENT

DRUGS (1)
  1. VALSARTAN 320 MG [Suspect]
     Active Substance: VALSARTAN
     Indication: PRODUCT USED FOR UNKNOWN INDICATION
     Dosage: 320 MILLIGRAM FILM COATED TABLETS
     Route: 048

REACTIONS (2)
  - Bladder cancer [Unknown]
  - Bladder cancer recurrent [Unknown]

NARRATIVE: CASE EVENT DATE: 2015
